FAERS Safety Report 8366591-3 (Version None)
Quarter: 2012Q2

REPORT INFORMATION
  Report Type: 
  Country: None (occurrence: None)
  Receive Date: 20120517
  Receipt Date: 20120510
  Transmission Date: 20120825
  Serious: Yes (Death, Life-Threatening, Hospitalization)
  Sender: FDA-Public Use
  Company Number: KR-BAYER-201030175GPV

PATIENT
  Age: 67 Year
  Sex: Male
  Weight: 77.2 kg

DRUGS (18)
  1. MAGMIL [Concomitant]
     Dosage: 500 MG (DAILY DOSE), QD, ORAL
     Route: 048
     Dates: start: 20100604, end: 20100624
  2. SUCRALFATE [Concomitant]
     Dosage: 1G/DAT
     Dates: start: 20100623, end: 20100623
  3. FUROSEMIDE [Concomitant]
     Dosage: 20 MG (DAILY DOSE), QD, ORAL
     Route: 048
     Dates: start: 20100621, end: 20100623
  4. LANTUS [Concomitant]
     Dosage: 16 IU (DAILY DOSE), QD, SUBCUTANEOUS
     Route: 058
     Dates: start: 20100605, end: 20100607
  5. CILOSTAZOL [Concomitant]
     Dosage: 100 MG (DAILY DOSE), QD, ORAL
     Route: 048
     Dates: start: 20100604, end: 20100709
  6. LACTULOSE [Concomitant]
     Dosage: 90 ML (DAILY DOSE), QD, ORAL
     Route: 048
     Dates: start: 20100616, end: 20100820
  7. INSULIN [INSULIN] [Concomitant]
     Dosage: 10 IU (DAILY DOSE), QD, SUBCUTANEOUS
     Route: 058
     Dates: start: 20100601, end: 20100603
  8. LEVODROPROPIZINE [Concomitant]
     Dosage: 6 ML (DAILY DOSE), QD,
     Dates: start: 20100710, end: 20100712
  9. SORAFENIB [Suspect]
     Route: 048
     Dates: start: 20100621, end: 20100623
  10. SORAFENIB [Suspect]
     Route: 048
     Dates: start: 20100629, end: 20100712
  11. BETAXOLOL [Concomitant]
     Dosage: 10 MG (DAILY DOSE), QD, ORAL
     Route: 048
     Dates: start: 20100604, end: 20100624
  12. REBAMIPIDE [Concomitant]
     Dosage: 300 MG (DAILY DOSE), QD, ORAL
     Route: 048
     Dates: start: 20100621, end: 20100624
  13. FREAMINE [Concomitant]
     Dosage: 10%
     Route: 042
     Dates: start: 20100610, end: 20100611
  14. SORAFENIB [Suspect]
     Indication: HEPATIC NEOPLASM MALIGNANT
     Route: 048
     Dates: start: 20100614, end: 20100620
  15. URSODIOL [Concomitant]
     Dosage: 400 MG (DAILY DOSE), QD, ORAL
     Route: 048
     Dates: start: 20100604, end: 20100624
  16. SILYMARIN [Concomitant]
     Dosage: 280 MG (DAILY DOSE), QD, ORAL
     Route: 048
     Dates: start: 20100604, end: 20100624
  17. NIFEDIPINE [Concomitant]
     Dosage: 30 MG (DAILY DOSE), QD, ORAL
     Route: 048
     Dates: start: 20100604, end: 20100709
  18. ALBUMIN (HUMAN) [Concomitant]
     Dosage: 20%
     Route: 042
     Dates: start: 20100609, end: 20100611

REACTIONS (1)
  - HEPATIC ENCEPHALOPATHY [None]
